FAERS Safety Report 23763293 (Version 4)
Quarter: 2024Q2

REPORT INFORMATION
  Report Type: Spontaneous
  Country: US (occurrence: US)
  Receive Date: 20240419
  Receipt Date: 20240624
  Transmission Date: 20240716
  Serious: Yes (Hospitalization, Other)
  Sender: FDA-Public Use
  Company Number: US-BIOVITRUM-2024-US-005909

PATIENT
  Age: 78 Year
  Sex: Male

DRUGS (1)
  1. VONJO [Suspect]
     Active Substance: PACRITINIB
     Indication: Myelodysplastic syndrome
     Dosage: TWICE A DAY
     Route: 048
     Dates: start: 20240320

REACTIONS (7)
  - Abdominal discomfort [Unknown]
  - Intestinal obstruction [Unknown]
  - Illness [Unknown]
  - Off label use [Not Recovered/Not Resolved]
  - Platelet count decreased [Unknown]
  - Immune system disorder [Unknown]
  - Gait disturbance [Unknown]

NARRATIVE: CASE EVENT DATE: 20240320
